FAERS Safety Report 4692108-0 (Version None)
Quarter: 2005Q2

REPORT INFORMATION
  Report Type: 
  Country: None (occurrence: None)
  Receive Date: 20050614
  Receipt Date: 20050606
  Transmission Date: 20051028
  Serious: Yes (Other)
  Sender: FDA-Public Use
  Company Number: 2005085538

PATIENT
  Sex: Male

DRUGS (1)
  1. XALATAN [Suspect]
     Indication: ILL-DEFINED DISORDER
     Dosage: OPTHALAMIC
     Route: 047

REACTIONS (1)
  - NEOPLASM MALIGNANT [None]
